FAERS Safety Report 24395863 (Version 1)
Quarter: 2024Q4

REPORT INFORMATION
  Report Type: Spontaneous
  Country: US (occurrence: US)
  Receive Date: 20241004
  Receipt Date: 20241004
  Transmission Date: 20250115
  Serious: Yes (Other)
  Sender: AMGEN
  Company Number: US-AMGEN-USASP2024193382

PATIENT
  Age: 64 Year
  Sex: Male

DRUGS (3)
  1. PREDNISONE [Suspect]
     Active Substance: PREDNISONE
     Indication: Warm autoimmune haemolytic anaemia
     Dosage: 80 MILLIGRAM
     Route: 065
  2. Immunoglobulin [Concomitant]
     Indication: Warm autoimmune haemolytic anaemia
     Dosage: UNK
     Route: 042
  3. ENTECAVIR [Concomitant]
     Active Substance: ENTECAVIR
     Dosage: UNK
     Route: 065

REACTIONS (8)
  - Septic shock [Unknown]
  - Atrial fibrillation [Unknown]
  - Disseminated cryptococcosis [Unknown]
  - Thrombocytopenia [Unknown]
  - Fungal sepsis [Unknown]
  - Meningitis cryptococcal [Unknown]
  - Fungal peritonitis [Unknown]
  - Herpes simplex test positive [Unknown]
